FAERS Safety Report 11976760 (Version 1)
Quarter: 2016Q1

REPORT INFORMATION
  Report Type: Spontaneous
  Country: US (occurrence: None)
  Receive Date: 20160128
  Receipt Date: 20160128
  Transmission Date: 20160526
  Serious: Yes (Other)
  Sender: FDA-Public Use
  Company Number: None

PATIENT
  Age: 60 Year
  Sex: Female

DRUGS (1)
  1. ALENDRONATE SODIUM 70MG NORTHSTAR RX LLC [Suspect]
     Active Substance: ALENDRONATE SODIUM
     Route: 048
     Dates: start: 20160126, end: 20160126

REACTIONS (5)
  - Fall [None]
  - Muscle spasms [None]
  - Abdominal pain upper [None]
  - Sleep disorder [None]
  - Impaired work ability [None]

NARRATIVE: CASE EVENT DATE: 20160126
